FAERS Safety Report 4485501-2 (Version None)
Quarter: 2004Q4

REPORT INFORMATION
  Report Type: 
  Country: None (occurrence: None)
  Receive Date: 20041026
  Receipt Date: 20041018
  Transmission Date: 20050328
  Serious: Yes (Other)
  Sender: FDA-Public Use
  Company Number: PHBS2004US14036

PATIENT
  Age: 74 Year
  Sex: Female

DRUGS (3)
  1. SALAGEN [Suspect]
     Route: 048
  2. WARFARIN [Concomitant]
     Dosage: 5 MG/DAY
     Route: 065
  3. WARFARIN [Concomitant]
     Dosage: 1 MG/DAY
     Route: 065

REACTIONS (4)
  - CEREBROVASCULAR ACCIDENT [None]
  - DRUG EFFECT DECREASED [None]
  - INTERNATIONAL NORMALISED RATIO INCREASED [None]
  - PROTHROMBIN TIME PROLONGED [None]
